FAERS Safety Report 14072221 (Version 1)
Quarter: 2017Q4

REPORT INFORMATION
  Report Type: Spontaneous
  Country: AT (occurrence: AT)
  Receive Date: 20171011
  Receipt Date: 20171011
  Transmission Date: 20180321
  Serious: Yes (Other)
  Sender: FDA-Public Use
  Company Number: AT-IPCA LABORATORIES LIMITED-IPC-2017-AT-003240

PATIENT
  Age: 63 Year
  Sex: Male

DRUGS (2)
  1. METHYLPREDNISOLONE. [Concomitant]
     Active Substance: METHYLPREDNISOLONE
     Indication: PRODUCT USED FOR UNKNOWN INDICATION
  2. CHLOROQUINE. [Suspect]
     Active Substance: CHLOROQUINE
     Indication: PRODUCT USED FOR UNKNOWN INDICATION

REACTIONS (1)
  - Retinal haemorrhage [Unknown]
